FAERS Safety Report 10983754 (Version 1)
Quarter: 2015Q2

REPORT INFORMATION
  Report Type: Spontaneous
  Country: US (occurrence: None)
  Receive Date: 20150401
  Receipt Date: 20150401
  Transmission Date: 20150821
  Serious: Yes (Other)
  Sender: FDA-Public Use
  Company Number: 001887367A

PATIENT
  Age: 26 Year
  Sex: Male

DRUGS (4)
  1. PROACTIV PLUS SKIN PURIFYING MASK [Suspect]
     Active Substance: SULFUR
     Indication: ACNE
     Dosage: QD DERMAL
     Dates: start: 20150104, end: 20150107
  2. PROACTIV PLUS COMPLEXION PERFECTING HYDRATOR [Suspect]
     Active Substance: SALICYLIC ACID
     Indication: ACNE
     Dosage: BID DERMAL
     Dates: start: 20150104, end: 20150107
  3. PROACTIVPLUS SKIN SMOOTHING EXFOLIATOR [Suspect]
     Active Substance: BENZOYL PEROXIDE
     Indication: ACNE
     Dosage: DERMAL BID
     Dates: start: 20150104, end: 20150107
  4. PROACTIV PLUS PORE TARGETING TREATMENT [Suspect]
     Active Substance: BENZOYL PEROXIDE
     Indication: ACNE
     Dosage: DERMAL BID
     Dates: start: 20150104, end: 20150107

REACTIONS (3)
  - Rash [None]
  - Generalised oedema [None]
  - Urticaria [None]

NARRATIVE: CASE EVENT DATE: 20150107
